FAERS Safety Report 6936903-3 (Version None)
Quarter: 2010Q3

REPORT INFORMATION
  Report Type: 
  Country: None (occurrence: None)
  Receive Date: 20100823
  Receipt Date: 20100818
  Transmission Date: 20110219
  Serious: Yes (Disabling, Other)
  Sender: FDA-Public Use
  Company Number: DE-BRISTOL-MYERS SQUIBB COMPANY-15245277

PATIENT
  Age: 59 Year
  Sex: Female
  Weight: 60 kg

DRUGS (27)
  1. IFOSFAMIDE [Suspect]
     Indication: CENTRAL NERVOUS SYSTEM LYMPHOMA
     Route: 042
     Dates: start: 20090406, end: 20090504
  2. ETOPOSIDE [Suspect]
     Indication: CENTRAL NERVOUS SYSTEM LYMPHOMA
     Route: 065
     Dates: start: 20090624, end: 20090626
  3. CARMUSTINE [Suspect]
     Indication: CENTRAL NERVOUS SYSTEM LYMPHOMA
     Route: 065
     Dates: start: 20090624, end: 20090624
  4. METHOTREXATE [Suspect]
     Indication: CENTRAL NERVOUS SYSTEM LYMPHOMA
     Route: 042
     Dates: start: 20090404, end: 20090430
  5. CYTARABINE [Suspect]
     Indication: CENTRAL NERVOUS SYSTEM LYMPHOMA
     Route: 065
     Dates: start: 20090409, end: 20090525
  6. DEXAMETHASONE [Suspect]
     Indication: CENTRAL NERVOUS SYSTEM LYMPHOMA
     Route: 048
     Dates: start: 20090409, end: 20090627
  7. ARA-C [Suspect]
     Indication: CENTRAL NERVOUS SYSTEM LYMPHOMA
     Route: 065
     Dates: start: 20090523, end: 20090524
  8. THIOTEPA [Suspect]
     Indication: CENTRAL NERVOUS SYSTEM LYMPHOMA
     Dosage: 1DF- 40UNK
     Route: 065
     Dates: start: 20090524, end: 20090626
  9. SODIUM BICARBONATE [Concomitant]
  10. POTASSIUM CHLORIDE [Concomitant]
  11. SODIUM CHLORIDE [Concomitant]
  12. MESNA [Concomitant]
  13. PASPERTIN [Concomitant]
  14. ZOFRAN [Concomitant]
  15. LEUCOVORIN CALCIUM [Concomitant]
  16. PANTOPRAZOLE SODIUM [Concomitant]
  17. LEVOFLOXACIN [Concomitant]
  18. AMPHOTERICIN B [Concomitant]
  19. BETAISODONA [Concomitant]
     Dosage: GARGLE
  20. NEUPOGEN [Concomitant]
  21. METOCLOPRAMIDE [Concomitant]
  22. HEPARIN [Concomitant]
  23. PREDNISOLONE [Concomitant]
  24. TAVEGIL [Concomitant]
  25. RANITIDINE HCL [Concomitant]
  26. METRONIDAZOLE [Concomitant]
  27. POTASSIUM [Concomitant]

REACTIONS (5)
  - FAECAL INCONTINENCE [None]
  - MUSCULAR WEAKNESS [None]
  - OEDEMA PERIPHERAL [None]
  - POLYNEUROPATHY [None]
  - URINARY INCONTINENCE [None]
